FAERS Safety Report 6066252-X (Version None)
Quarter: 2009Q1

REPORT INFORMATION
  Report Type: 
  Country: None (occurrence: None)
  Receive Date: 20090202
  Receipt Date: 20090123
  Transmission Date: 20090719
  Serious: Yes (Hospitalization)
  Sender: FDA-Public Use
  Company Number: CLOF-1000389

PATIENT
  Age: 11 Year
  Sex: Female
  Weight: 44.8 kg

DRUGS (12)
  1. CLOLAR (CLOFARABINE) SOLUTIONI FOR INFUSION [Suspect]
     Indication: B-CELL TYPE ACUTE LEUKAEMIA
     Dosage: 27.2 MG, QDX3, INTRAVENOUS, 27.2 MG, QDX3, INTRAVENOUS
     Route: 042
     Dates: start: 20081202, end: 20081204
  2. CLOLAR (CLOFARABINE) SOLUTIONI FOR INFUSION [Suspect]
     Indication: B-CELL TYPE ACUTE LEUKAEMIA
     Dosage: 27.2 MG, QDX3, INTRAVENOUS, 27.2 MG, QDX3, INTRAVENOUS
     Route: 042
     Dates: start: 20081209, end: 20081211
  3. CLOLAR (CLOFARABINE) SOLUTIONI FOR INFUSION [Suspect]
  4. CYCLOPHOSPHAMIDE [Suspect]
     Indication: B-CELL TYPE ACUTE LEUKAEMIA
     Dosage: 272 MG, ONCE, INTRAVENOUS, 544 MG, QD3, INTRAVENOUS
     Route: 042
     Dates: start: 20081201, end: 20081201
  5. CYCLOPHOSPHAMIDE [Suspect]
     Indication: B-CELL TYPE ACUTE LEUKAEMIA
     Dosage: 272 MG, ONCE, INTRAVENOUS, 544 MG, QD3, INTRAVENOUS
     Route: 042
     Dates: start: 20081202, end: 20081204
  6. CYCLOPHOSPHAMIDE [Suspect]
     Indication: B-CELL TYPE ACUTE LEUKAEMIA
     Dosage: 272 MG, ONCE, INTRAVENOUS, 544 MG, QD3, INTRAVENOUS
     Route: 042
     Dates: start: 20081209, end: 20081211
  7. ONDANSETRON HCL [Concomitant]
  8. ALLOPURINOL [Concomitant]
  9. ACETAMINOPHEN [Concomitant]
  10. FLUCONAZOLE [Concomitant]
  11. DIPHENHYDRAMINE HCL [Concomitant]
  12. HYDROCORTISONE (HYDROCORTISONE) [Concomitant]

REACTIONS (14)
  - CONSTIPATION [None]
  - DEPRESSION [None]
  - HAEMOGLOBIN DECREASED [None]
  - HYPOKALAEMIA [None]
  - INSOMNIA [None]
  - LEUKOPENIA [None]
  - LYMPHOPENIA [None]
  - NAUSEA [None]
  - NEUTROPENIA [None]
  - NEUTROPENIC INFECTION [None]
  - PAIN [None]
  - PERIORBITAL CELLULITIS [None]
  - SINUSITIS [None]
  - THROMBOCYTOPENIA [None]
